FAERS Safety Report 20672528 (Version 3)
Quarter: 2022Q3

REPORT INFORMATION
  Report Type: Spontaneous
  Country: DE (occurrence: DE)
  Receive Date: 20220405
  Receipt Date: 20220822
  Transmission Date: 20221026
  Serious: No
  Sender: FDA-Public Use
  Company Number: DE-LUPIN PHARMACEUTICALS INC.-2022-04463

PATIENT
  Sex: Male

DRUGS (8)
  1. TADALAFIL [Suspect]
     Active Substance: TADALAFIL
     Indication: Prostate infection
     Dosage: UNK
     Route: 048
     Dates: start: 202203
  2. TADALAFIL [Suspect]
     Active Substance: TADALAFIL
     Indication: Prostatic disorder
     Dosage: 5 MG, QD
     Route: 048
     Dates: start: 202203
  3. LISINOPRIL [Concomitant]
     Active Substance: LISINOPRIL
     Indication: Product used for unknown indication
     Dosage: 10 MG, BID (1-0-1-0)
     Route: 065
  4. DULOXETINE [Concomitant]
     Active Substance: DULOXETINE
     Indication: Product used for unknown indication
     Dosage: 30 MG, QD (1-0-0-0)
     Route: 065
  5. AMLODIPINE [Concomitant]
     Active Substance: AMLODIPINE BESYLATE
     Indication: Product used for unknown indication
     Dosage: 5 MG, BID (1-0-1-0)
     Route: 065
  6. PRAMIPEXOLE [Concomitant]
     Active Substance: PRAMIPEXOLE
     Indication: Product used for unknown indication
     Dosage: 0.35 MG, BID (0-1-0-1)
     Route: 065
  7. TADALAFIL AL [Concomitant]
     Indication: Prostatic disorder
     Dosage: 5 MG, QD
     Route: 065
  8. TADALAFIL AL [Concomitant]
     Dosage: 10 MG, QD (IN ADDITION TO 5 MG)
     Route: 065

REACTIONS (3)
  - Drug ineffective [Unknown]
  - Overdose [Unknown]
  - Wrong technique in product usage process [Unknown]
